FAERS Safety Report 18440086 (Version 1)
Quarter: 2020Q4

REPORT INFORMATION
  Report Type: Report from Study
  Country: FR (occurrence: FR)
  Receive Date: 20201029
  Receipt Date: 20201029
  Transmission Date: 20210114
  Serious: Yes (Other)
  Sender: FDA-Public Use
  Company Number: FR-GLAXOSMITHKLINE-FR2020071888

PATIENT
  Age: 61 Year
  Sex: Male
  Weight: 60 kg

DRUGS (3)
  1. BELANTAMAB MAFODOTIN. [Suspect]
     Active Substance: BELANTAMAB MAFODOTIN
     Indication: PLASMA CELL MYELOMA
     Dosage: 147 MG, CYC
     Route: 042
     Dates: start: 20181009, end: 20200326
  2. VITAMIN A [Concomitant]
     Active Substance: VITAMIN A
     Indication: ULCERATIVE KERATITIS
     Dosage: 1 APPLICATION(S), TID (LEFT EYE)
     Route: 047
     Dates: start: 20200416, end: 20200422
  3. TOBREX [Concomitant]
     Active Substance: TOBRAMYCIN
     Indication: ULCERATIVE KERATITIS
     Dosage: 1 GTT, TID (LEFT EYE)
     Route: 047
     Dates: start: 20200416, end: 20200422

REACTIONS (1)
  - Ulcerative keratitis [Recovered/Resolved]

NARRATIVE: CASE EVENT DATE: 20200409
